FAERS Safety Report 8470057 (Version 5)
Quarter: 2015Q3

REPORT INFORMATION
  Report Type: Spontaneous
  Country: US (occurrence: US)
  Receive Date: 20120321
  Receipt Date: 20150803
  Transmission Date: 20151125
  Serious: Yes (Hospitalization, Disabling, Other)
  Sender: FDA-Public Use
  Company Number: US-MERCK-1203USA02331

PATIENT
  Sex: Female
  Weight: 83.9 kg

DRUGS (1)
  1. FOSAMAX [Suspect]
     Active Substance: ALENDRONATE SODIUM
     Indication: OSTEOPOROSIS
     Dosage: 10 MG, QD
     Route: 048
     Dates: end: 20061027

REACTIONS (23)
  - Intramedullary rod insertion [Unknown]
  - Musculoskeletal pain [Unknown]
  - Intramedullary rod insertion [Unknown]
  - Staphylococcal infection [Unknown]
  - Oophorectomy [Unknown]
  - Arthralgia [Unknown]
  - Radius fracture [Unknown]
  - Dyspnoea [Unknown]
  - Appendicectomy [Unknown]
  - Hypercalcaemia [Unknown]
  - Osteoarthritis [Unknown]
  - Femur fracture [Not Recovered/Not Resolved]
  - Fall [Unknown]
  - Osteosclerosis [Unknown]
  - Open reduction of fracture [Unknown]
  - Low density lipoprotein increased [Unknown]
  - Aortic arteriosclerosis [Unknown]
  - Femur fracture [Not Recovered/Not Resolved]
  - Hysterectomy [Unknown]
  - Arthritis [Unknown]
  - Cardiomegaly [Unknown]
  - Anaemia postoperative [Unknown]
  - Blood cholesterol increased [Unknown]

NARRATIVE: CASE EVENT DATE: 20060128
